FAERS Safety Report 24560154 (Version 1)
Quarter: 2024Q4

REPORT INFORMATION
  Report Type: Other
  Country: ES (occurrence: ES)
  Receive Date: 20241029
  Receipt Date: 20241029
  Transmission Date: 20250115
  Serious: Yes (Other)
  Sender: WES PHARMA INC
  Company Number: ES-WES Pharma Inc-2164016

PATIENT
  Age: 12 Year
  Sex: Male

DRUGS (4)
  1. METHYLPHENIDATE HYDROCHLORIDE [Suspect]
     Active Substance: METHYLPHENIDATE HYDROCHLORIDE
     Indication: Attention deficit hyperactivity disorder
  2. METHYLPHENIDATE HYDROCHLORIDE [Suspect]
     Active Substance: METHYLPHENIDATE HYDROCHLORIDE
     Indication: Tourette^s disorder
  3. ARIPIPRAZOLE [Concomitant]
     Active Substance: ARIPIPRAZOLE
  4. ATOMOXETINE [Concomitant]
     Active Substance: ATOMOXETINE HYDROCHLORIDE

REACTIONS (5)
  - Tourette^s disorder [Recovered/Resolved]
  - Product use in unapproved indication [Unknown]
  - Contraindicated product administered [Unknown]
  - Decreased appetite [Unknown]
  - Insomnia [Unknown]
